FAERS Safety Report 12467322 (Version 3)
Quarter: 2018Q2

REPORT INFORMATION
  Report Type: Spontaneous
  Country: US (occurrence: US)
  Receive Date: 20160615
  Receipt Date: 20180412
  Transmission Date: 20180711
  Serious: No
  Sender: FDA-Public Use
  Company Number: US-PFIZER INC-2015269525

PATIENT
  Age: 51 Year
  Sex: Female
  Weight: 125 kg

DRUGS (86)
  1. PROVENTIL HFA [Concomitant]
     Active Substance: ALBUTEROL SULFATE
     Indication: WHEEZING
     Dosage: 108 (90 BASE) MCG/ACT, 2 PUFFS BY MOUTH EVERY HOURS AS NEEDED
     Route: 055
  2. VENTOLIN HFA [Concomitant]
     Active Substance: ALBUTEROL SULFATE
     Indication: WHEEZING
     Dosage: 108 (90 BASE) MCG/ACT, 2 PUFFS BY MOUTH EVERY HOURS AS NEEDED
     Route: 055
  3. MIGRANAL [Concomitant]
     Active Substance: DIHYDROERGOTAMINE MESYLATE
     Indication: MIGRAINE
     Dosage: 1 SPRAY INTO EACH NOSTRIL AS NEEDED
     Route: 045
  4. SYNTHROID [Concomitant]
     Active Substance: LEVOTHYROXINE SODIUM
     Dosage: 150 ?G, EVERY OTHER DAY
     Route: 048
  5. PRINIVIL [Concomitant]
     Active Substance: LISINOPRIL
     Dosage: 10 MG, DAILY
     Route: 048
  6. GLUCOPHATE-XR [Concomitant]
     Dosage: 1000 MG, DAILY
     Route: 048
  7. PERCOCET [Concomitant]
     Active Substance: ACETAMINOPHEN\OXYCODONE HYDROCHLORIDE
     Indication: PAIN
     Dosage: 1 DF, EVERY FOUR HOURS AS NEEDED [OXYCODONE: 5MG]/ [ACETAMINOPHEN: 325MG]
     Route: 048
  8. COMPAZINE [Concomitant]
     Active Substance: PROCHLORPERAZINE MALEATE
     Indication: NAUSEA
     Dosage: 10 MG, EVERY SIX HOUR AS NEEDED
     Route: 048
  9. FAMOTIDINE. [Concomitant]
     Active Substance: FAMOTIDINE
     Dosage: 40 MG, 2X/DAY
     Route: 048
  10. EPLERENONE. [Concomitant]
     Active Substance: EPLERENONE
     Dosage: 50 MG, 1X/DAY
  11. HYDROXYCHLOROQUINE SULFATE. [Concomitant]
     Active Substance: HYDROXYCHLOROQUINE SULFATE
     Dosage: 200 MG, 2X/DAY
     Route: 048
  12. LISINOPRIL. [Concomitant]
     Active Substance: LISINOPRIL
     Dosage: 10 MG, DAILY
     Route: 048
  13. MECLIZINE HCL [Concomitant]
     Active Substance: MECLIZINE HYDROCHLORIDE
     Dosage: 25 MG, THREE TIMES DAILY AS NEEDED
     Route: 048
  14. TOLTERODINE TARTRATE. [Concomitant]
     Active Substance: TOLTERODINE TARTRATE
     Dosage: 4 MG, DAILY
     Route: 048
  15. LYRICA [Suspect]
     Active Substance: PREGABALIN
     Indication: PAIN
     Dosage: 75MG 2 CAPSULES ONCE A DAY
     Route: 048
  16. LYRICA [Suspect]
     Active Substance: PREGABALIN
     Indication: SPINAL OSTEOARTHRITIS
     Dosage: 225 MG, 1X/DAY (75MG, 3 CAPSULE ONCE AT NIGHT)
     Route: 048
  17. INSPRA [Concomitant]
     Active Substance: EPLERENONE
     Dosage: 50 MG, DAILY (2 TABLETS)
     Route: 048
  18. ACTEMRA [Concomitant]
     Active Substance: TOCILIZUMAB
     Dosage: 800 MG, EVERY 4 WEEKS
     Route: 042
  19. FERGON [Concomitant]
     Active Substance: FERROUS GLUCONATE
     Dosage: 324 MG, DAILY (WITH BREAKFAST)
     Route: 048
  20. MELATONIN [Concomitant]
     Active Substance: MELATONIN
     Dosage: 10 MG, DAILY (AT BEDTIME)
     Route: 048
  21. KETOCONAZOLE. [Concomitant]
     Active Substance: KETOCONAZOLE
     Indication: RASH
     Dosage: USE TWICE DAILY AS NEEDED
  22. NARATRIPTAN HCL [Concomitant]
     Active Substance: NARATRIPTAN HYDROCHLORIDE
     Indication: HEADACHE
     Dosage: 2.5 MG, BID PRN
     Route: 048
  23. ZOMIG [Concomitant]
     Active Substance: ZOLMITRIPTAN
     Indication: HEADACHE
     Dosage: 1 SPRAY IN EACH NOSTRIL, BID PRN
     Route: 045
  24. KETOCONAZOLE. [Concomitant]
     Active Substance: KETOCONAZOLE
     Dosage: 2-3 DAYS PER WEEK
  25. PROCHLORPERAZINE MALEATE. [Concomitant]
     Active Substance: PROCHLORPERAZINE MALEATE
     Indication: NAUSEA
     Dosage: 10 MG, EVERY 6 HOURS AS NEEDED
  26. AZULFIDINE [Concomitant]
     Active Substance: SULFASALAZINE
     Dosage: 500 MG, 3X/DAY
     Route: 048
  27. AZULFIDINE [Concomitant]
     Active Substance: SULFASALAZINE
     Dosage: 1500 MG, 2X/DAY
     Route: 048
  28. CYCLOBENZAPRINE. [Concomitant]
     Active Substance: CYCLOBENZAPRINE
     Indication: PAIN
     Dosage: UNK
     Route: 061
  29. CALCIUM CARBONATE-VITAMIN D [Concomitant]
     Active Substance: CALCIUM CARBONATE\VITAMIN D
     Dosage: 1 DF (600-200 MG DOSE), DAILY [CALCIUM CARBONATE: 1500MG] / [VITAMIN D: 400MG]
     Route: 048
  30. ROBITUSSIN DM [Concomitant]
     Active Substance: DEXTROMETHORPHAN HYDROBROMIDE\GUAIFENESIN
     Dosage: 5 ML, EVERY TWELVE HOURS [DEXTROMETHORPHAN: 10MG/5ML]/ [GUAIFENESIN: 100MG/5ML]
     Route: 048
  31. SIMPONI ARIA [Concomitant]
     Active Substance: GOLIMUMAB
     Dosage: 50MG/4ML INTO THE VEIN EVERY 8 WEEKS
     Route: 042
  32. METFORMIN HCL [Concomitant]
     Active Substance: METFORMIN HYDROCHLORIDE
     Dosage: 1000 MG, DAILY (2 TABLETS ONCE DAILY WITH THE EVENING MEAL.)
  33. FERROUS GLUCONATE [Concomitant]
     Active Substance: FERROUS GLUCONATE
     Dosage: 324 MG, DAILY
     Route: 048
  34. SUCRALFATE. [Concomitant]
     Active Substance: SUCRALFATE
     Dosage: 1 G, 3X/DAY
  35. TIZANIDINE HCL [Concomitant]
     Active Substance: TIZANIDINE HYDROCHLORIDE
     Dosage: 4 MG, AT BEDTIME
     Route: 048
  36. KETAMINE [Concomitant]
     Active Substance: KETAMINE
     Indication: PAIN
     Dosage: UNK
     Route: 061
  37. NIZORAL [Concomitant]
     Active Substance: KETOCONAZOLE
     Dosage: THREE TIMES A WEEK
     Route: 061
  38. CORGARD [Concomitant]
     Active Substance: NADOLOL
     Dosage: 20 MG, 2X/DAY
     Route: 048
  39. LOVAZA [Concomitant]
     Active Substance: OMEGA-3-ACID ETHYL ESTERS
     Dosage: 1 G, 2 TWICE DAILY
     Route: 048
  40. ZOMIG [Concomitant]
     Active Substance: ZOLMITRIPTAN
     Indication: MIGRAINE
     Dosage: 5 MG, AS NEEDED (MAY REPEAT ONCE AFTER 2 HOURS MAX 10MG/DAY)
     Route: 048
  41. ATORVASTATIN [Concomitant]
     Active Substance: ATORVASTATIN
     Dosage: 40 MG, 1X/DAY
  42. RIZATRIPTAN BENZOATE. [Concomitant]
     Active Substance: RIZATRIPTAN BENZOATE
     Indication: HEADACHE
     Dosage: 10 MG, BID PRN
     Route: 060
  43. SERTRALINE HCL [Concomitant]
     Active Substance: SERTRALINE HYDROCHLORIDE
     Dosage: 150 MG, DAILY
     Route: 048
  44. LYRICA [Suspect]
     Active Substance: PREGABALIN
     Indication: RADICULOPATHY
     Dosage: 1-4 CAPS, AS NEEDED
     Route: 048
  45. DETROL LA [Concomitant]
     Active Substance: TOLTERODINE TARTRATE
     Dosage: 4 MG, DAILY
     Route: 048
  46. LOPID [Concomitant]
     Active Substance: GEMFIBROZIL
     Dosage: 600 MG, 2X/DAY (BEFORE MEALS)
     Route: 048
  47. TIZANIDINE. [Concomitant]
     Active Substance: TIZANIDINE
     Dosage: 4MG 1-3 MG AT BEDTIME
  48. PULMICORT TURBUHALER [Concomitant]
     Active Substance: BUDESONIDE
     Dosage: 180 MCG/ACT, 1 PUFF 2 TIMES DAILY
     Route: 055
  49. SYNTHROID [Concomitant]
     Active Substance: LEVOTHYROXINE SODIUM
     Dosage: 175 UG, ALTERNATE DAY
     Route: 048
  50. ZESTRIL [Concomitant]
     Active Substance: LISINOPRIL
     Dosage: 10 MG, DAILY
     Route: 048
  51. MELATONIN [Concomitant]
     Active Substance: MELATONIN
     Dosage: 5 MG, 2 TABS, AS NEEDED
     Route: 048
  52. PROVIGIL [Concomitant]
     Active Substance: MODAFINIL
     Dosage: 200 MG, DAILY
     Route: 048
  53. DELTASONE [Concomitant]
     Active Substance: PREDNISONE
     Dosage: 10 MG, DAILY (WITH BREAKFAST)
     Route: 048
  54. NADOLOL. [Concomitant]
     Active Substance: NADOLOL
     Dosage: 20 MG, 2X/DAY
     Route: 048
  55. GEMFIBROZIL. [Concomitant]
     Active Substance: GEMFIBROZIL
     Dosage: 600 MG, 2X/DAY
     Route: 048
  56. HYDROXYZINE HCL [Concomitant]
     Active Substance: HYDROXYZINE HYDROCHLORIDE
     Indication: VOMITING
  57. PROVIGIL [Concomitant]
     Active Substance: MODAFINIL
     Dosage: 200 MG, DAILY
     Route: 048
  58. SULFASALAZINE. [Concomitant]
     Active Substance: SULFASALAZINE
     Dosage: 1500 MG, 2X/DAY
  59. LYRICA [Suspect]
     Active Substance: PREGABALIN
     Indication: NECK PAIN
     Dosage: 75MG, 1 CAPSULE TWICE A DAY
     Route: 048
  60. PROVERA [Concomitant]
     Active Substance: MEDROXYPROGESTERONE ACETATE
     Dosage: 10 MG, DAILY
     Route: 048
  61. FLURBIPROFEN. [Concomitant]
     Active Substance: FLURBIPROFEN
     Indication: PAIN
     Dosage: UNK
     Route: 061
  62. VITAMIN D3 [Concomitant]
     Active Substance: CHOLECALCIFEROL
     Dosage: 5000 IU, DAILY
     Route: 048
  63. ATARAX [Concomitant]
     Active Substance: HYDROXYZINE HYDROCHLORIDE
     Indication: PRURITUS
     Dosage: 25 MG, 3 TIMES DAILY AS NEEDED
     Route: 048
  64. SYNTHROID [Concomitant]
     Active Substance: LEVOTHYROXINE SODIUM
     Dosage: 175 UG, 1X/DAY
     Route: 048
  65. MYSOLINE [Concomitant]
     Active Substance: PRIMIDONE
     Dosage: 50 MG, 4X/DAY
     Route: 048
  66. COMPAZINE [Concomitant]
     Active Substance: PROCHLORPERAZINE MALEATE
     Indication: VOMITING
  67. CARAFATE [Concomitant]
     Active Substance: SUCRALFATE
     Dosage: 1 G, 4X/DAY
     Route: 048
  68. FLUTICASONE PROPIONATE. [Concomitant]
     Active Substance: FLUTICASONE PROPIONATE
     Dosage: 2 SPRAYS IN EACH NOSTRILS
     Route: 045
  69. MEDROXYPROGESTERONE ACETATE. [Concomitant]
     Active Substance: MEDROXYPROGESTERONE ACETATE
     Dosage: 10 MG, 1X/DAY
  70. OXYCODONE-ACETAMINOPHEN [Concomitant]
     Active Substance: ACETAMINOPHEN\OXYCODONE HYDROCHLORIDE
     Indication: PAIN
     Dosage: 1-2 EVERY 6 HOURS AS NEEDED [OXYCODONE: 5 MG]/[ACETAMINOPHEN: 325 MG]
  71. PULMICORT TURBUHALER [Concomitant]
     Active Substance: BUDESONIDE
     Dosage: 1 DF, 2X/DAY
  72. CYCLOSPORINE. [Concomitant]
     Active Substance: CYCLOSPORINE
     Dosage: 2 GTT, 2X/DAY
  73. PRIMIDONE. [Concomitant]
     Active Substance: PRIMIDONE
     Dosage: 100 MG, AT BEDTIME
  74. ANTIVERT [Concomitant]
     Active Substance: MECLIZINE HYDROCHLORIDE
     Dosage: 25 MG, 3 TIMES DAILY AS NEEDED
     Route: 048
  75. ZOLOFT [Concomitant]
     Active Substance: SERTRALINE HYDROCHLORIDE
     Dosage: 150 MG, DAILY
  76. PLAQUENIL [Concomitant]
     Active Substance: HYDROXYCHLOROQUINE SULFATE
     Dosage: 200 MG, 2X/DAY
     Route: 048
  77. LAMICTAL [Concomitant]
     Active Substance: LAMOTRIGINE
     Dosage: 100 MG, 1/2 TAB DAILY
  78. PROAIR HFA [Concomitant]
     Active Substance: ALBUTEROL SULFATE
     Dosage: 108 (90 BASE) MCG/ACT, EVERY 4 HOURS AS NEEDED
  79. CALCIUM+ D3 [Concomitant]
     Dosage: 1 DF, 3X/DAY [CALCIUM -600 MG]/ [CARBONATE COLECALCIFEROL-200 MG]
     Route: 048
  80. RESTASIS [Concomitant]
     Active Substance: CYCLOSPORINE
     Dosage: 1 DROP IN EACH EYE  2 TIMES DAILY
     Route: 047
  81. FLONASE [Concomitant]
     Active Substance: FLUTICASONE PROPIONATE
     Dosage: 2 SPRAYS INTO EACH NOSTRIL DAILY
     Route: 045
  82. MEVACOR [Concomitant]
     Active Substance: LOVASTATIN
     Dosage: 40 MG, DAILY (AT BEDTIME)
     Route: 048
  83. LEVOTHYROXINE SODIUM. [Concomitant]
     Active Substance: LEVOTHYROXINE SODIUM
     Dosage: 200 UG, DAILY
     Route: 048
  84. HYDROXYZINE HCL [Concomitant]
     Active Substance: HYDROXYZINE HYDROCHLORIDE
     Indication: NAUSEA
     Dosage: 25 MG, FOUR TIMES DAILY AS NEEDED
     Route: 048
  85. PREDNISONE. [Concomitant]
     Active Substance: PREDNISONE
     Dosage: 10 MG, DAILY
     Route: 048
  86. VITAMIN D3 [Suspect]
     Active Substance: CHOLECALCIFEROL
     Dosage: 1 DF, DAILY
     Route: 048

REACTIONS (1)
  - Body mass index increased [Unknown]

NARRATIVE: CASE EVENT DATE: 20160128
